FAERS Safety Report 16212449 (Version 1)
Quarter: 2019Q2

REPORT INFORMATION
  Report Type: Spontaneous
  Country: US (occurrence: US)
  Receive Date: 20190418
  Receipt Date: 20190418
  Transmission Date: 20190711
  Serious: No
  Sender: FDA-Public Use
  Company Number: US-PFIZER INC-2019149800

PATIENT
  Age: 71 Year
  Sex: Male
  Weight: 61.22 kg

DRUGS (2)
  1. CHANTIX [Suspect]
     Active Substance: VARENICLINE TARTRATE
     Dosage: 1 MG, 2X/DAY (TAKE 1 TABLET (1 MG TOTAL) BY MOUTH 2 (TWO) TIMES A DAY TAKE WITH FULL GLASS OF WATER)
     Route: 048
     Dates: start: 20190402
  2. CHANTIX [Suspect]
     Active Substance: VARENICLINE TARTRATE
     Indication: SMOKING CESSATION THERAPY
     Dosage: 1 MG, 2X/DAY
     Route: 048
     Dates: start: 20190301, end: 20190410

REACTIONS (2)
  - Intentional product use issue [Recovered/Resolved]
  - Blood pressure decreased [Unknown]

NARRATIVE: CASE EVENT DATE: 201904
